FAERS Safety Report 25440406 (Version 1)
Quarter: 2025Q2

REPORT INFORMATION
  Report Type: Spontaneous
  Country: ZA (occurrence: ZA)
  Receive Date: 20250616
  Receipt Date: 20250616
  Transmission Date: 20250717
  Serious: Yes (Other)
  Sender: EMD SERONO INC
  Company Number: ZA-Merck Healthcare KGaA-2025029165

PATIENT
  Age: 64 Year
  Sex: Male

DRUGS (10)
  1. GLUCOPHAGE XR [Suspect]
     Active Substance: METFORMIN HYDROCHLORIDE
     Indication: Product used for unknown indication
  2. TORSEMIDE [Suspect]
     Active Substance: TORSEMIDE
     Indication: Product used for unknown indication
  3. AMIODARONE [Suspect]
     Active Substance: AMIODARONE
     Indication: Product used for unknown indication
  4. ATORVASTATIN [Suspect]
     Active Substance: ATORVASTATIN
     Indication: Product used for unknown indication
  5. DOXAZOSIN MESYLATE [Suspect]
     Active Substance: DOXAZOSIN MESYLATE
     Indication: Product used for unknown indication
  6. CARVEDILOL [Suspect]
     Active Substance: CARVEDILOL
     Indication: Product used for unknown indication
  7. PIMECLONE HYDROCHLORIDE [Suspect]
     Active Substance: PIMECLONE HYDROCHLORIDE
     Indication: Product used for unknown indication
  8. PERINDOPRIL [Suspect]
     Active Substance: PERINDOPRIL
     Indication: Product used for unknown indication
  9. RYZODEG 70/30 [Suspect]
     Active Substance: INSULIN ASPART\INSULIN DEGLUDEC
     Indication: Product used for unknown indication
  10. MINERALS\VITAMINS [Suspect]
     Active Substance: MINERALS\VITAMINS
     Indication: Product used for unknown indication

REACTIONS (15)
  - Leg amputation [Unknown]
  - Skin ulcer [Not Recovered/Not Resolved]
  - Weight decreased [Unknown]
  - Blood potassium increased [Unknown]
  - Blood glucose increased [Unknown]
  - C-reactive protein increased [Unknown]
  - Haemoglobin decreased [Unknown]
  - Red cell distribution width increased [Unknown]
  - Blood sodium decreased [Unknown]
  - Blood bicarbonate decreased [Unknown]
  - Blood urea increased [Unknown]
  - Red blood cell count decreased [Unknown]
  - Haematocrit decreased [Unknown]
  - Mean cell haemoglobin decreased [Unknown]
  - Glycosylated haemoglobin increased [Unknown]

NARRATIVE: CASE EVENT DATE: 20250301
